FAERS Safety Report 5903093-5 (Version None)
Quarter: 2008Q3

REPORT INFORMATION
  Report Type: 
  Country: None (occurrence: None)
  Receive Date: 20080930
  Receipt Date: 20080921
  Transmission Date: 20090109
  Serious: Yes (Other)
  Sender: FDA-Public Use
  Company Number: KP-PURDUE-USA_2008_0035007

PATIENT
  Age: 54 Year
  Sex: Male

DRUGS (1)
  1. CHLORHEXIDINE GLUCONATE [Suspect]
     Indication: ANTI-INFECTIVE THERAPY
     Dosage: 10 ML, SEE TEXT

REACTIONS (1)
  - ANAPHYLACTIC REACTION [None]
